FAERS Safety Report 17026957 (Version 2)
Quarter: 2019Q4

REPORT INFORMATION
  Report Type: Spontaneous
  Country: NL (occurrence: NL)
  Receive Date: 20191113
  Receipt Date: 20191125
  Transmission Date: 20200122
  Serious: Yes (Hospitalization)
  Sender: FDA-Public Use
  Company Number: NL-MYLANLABS-2019M1107730

PATIENT
  Age: 73 Year
  Sex: Male

DRUGS (2)
  1. XANAX [Suspect]
     Active Substance: ALPRAZOLAM
     Indication: ALCOHOL PROBLEM
     Dosage: 1 DOSAGE FORM, QD
     Route: 065
  2. DIAZEPAM. [Suspect]
     Active Substance: DIAZEPAM
     Indication: ALCOHOL PROBLEM
     Dosage: 40 MILLIGRAM, QD, 4 TIMES DAILY 1 DIAZEPAM
     Route: 065

REACTIONS (12)
  - Treatment failure [Recovering/Resolving]
  - Loss of personal independence in daily activities [Recovering/Resolving]
  - Suspiciousness [Recovering/Resolving]
  - Anger [Recovering/Resolving]
  - Therapy non-responder [Recovering/Resolving]
  - General physical health deterioration [Recovering/Resolving]
  - Mood altered [Recovering/Resolving]
  - Somnolence [Recovering/Resolving]
  - Rehabilitation therapy [Recovering/Resolving]
  - Personality disorder [Recovering/Resolving]
  - Irritability [Recovering/Resolving]
  - Poor quality sleep [Recovering/Resolving]

NARRATIVE: CASE EVENT DATE: 201806
